FAERS Safety Report 6451326-1 (Version None)
Quarter: 2009Q4

REPORT INFORMATION
  Report Type: 
  Country: None (occurrence: None)
  Receive Date: 20091123
  Receipt Date: 20091119
  Transmission Date: 20100525
  Serious: Yes (Life-Threatening, Other)
  Sender: FDA-Public Use
  Company Number: US-MERCK-0909USA03607

PATIENT
  Age: 10 Year
  Sex: Male
  Weight: 35 kg

DRUGS (7)
  1. SINGULAIR [Suspect]
     Indication: HYPERSENSITIVITY
     Route: 048
     Dates: start: 20080228, end: 20090601
  2. SINGULAIR [Suspect]
     Route: 048
     Dates: start: 20090601, end: 20090901
  3. SINGULAIR [Suspect]
     Indication: ASTHMA
     Route: 048
     Dates: start: 20080228, end: 20090601
  4. SINGULAIR [Suspect]
     Route: 048
     Dates: start: 20090601, end: 20090901
  5. NASONEX [Concomitant]
     Route: 065
  6. ADVAIR DISKUS 100/50 [Concomitant]
     Route: 065
  7. COUGH, COLD, AND FLU THERAPIES (UNSPECIFIED) [Concomitant]
     Route: 065

REACTIONS (10)
  - AGITATION [None]
  - ANGER [None]
  - ASTHMA [None]
  - DEPRESSION [None]
  - EDUCATIONAL PROBLEM [None]
  - IRRITABILITY [None]
  - MOOD SWINGS [None]
  - PICA [None]
  - SUICIDAL IDEATION [None]
  - SUICIDE ATTEMPT [None]
